FAERS Safety Report 13089017 (Version 1)
Quarter: 2017Q1

REPORT INFORMATION
  Report Type: Spontaneous
  Country: US (occurrence: US)
  Receive Date: 20170104
  Receipt Date: 20170104
  Transmission Date: 20170428
  Serious: Yes (Disabling)
  Sender: FDA-Public Use
  Company Number: None

PATIENT
  Age: 74 Year
  Sex: Male
  Weight: 90.45 kg

DRUGS (19)
  1. BELVIQ [Suspect]
     Active Substance: LORCASERIN HYDROCHLORIDE
     Indication: WEIGHT DECREASED
     Route: 048
     Dates: start: 20161203, end: 20161208
  2. BENZONATATE. [Concomitant]
     Active Substance: BENZONATATE
  3. VIT B COMPLEX [Concomitant]
  4. CALCIUM [Concomitant]
     Active Substance: CALCIUM
  5. VIAGRA [Concomitant]
     Active Substance: SILDENAFIL CITRATE
  6. NORVASC [Concomitant]
     Active Substance: AMLODIPINE BESYLATE
  7. MGO [Concomitant]
     Active Substance: MAGNESIUM OXIDE
  8. METFORMIN [Concomitant]
     Active Substance: METFORMIN HYDROCHLORIDE
  9. AVODART [Concomitant]
     Active Substance: DUTASTERIDE
  10. ASA [Concomitant]
     Active Substance: ASPIRIN
  11. LIPITOR [Concomitant]
     Active Substance: ATORVASTATIN CALCIUM
  12. SYNTHROID [Concomitant]
     Active Substance: LEVOTHYROXINE SODIUM
  13. DEXILANT [Concomitant]
     Active Substance: DEXLANSOPRAZOLE
  14. HYDROCHLORTHIAZIDE [Concomitant]
     Active Substance: HYDROCHLOROTHIAZIDE
  15. CARVEDILOL. [Concomitant]
     Active Substance: CARVEDILOL
  16. BLIMEPERIDE [Concomitant]
  17. FISH OIL [Concomitant]
     Active Substance: FISH OIL
  18. VITAMIN C [Concomitant]
     Active Substance: ASCORBIC ACID
  19. VITAMIN D3 [Concomitant]
     Active Substance: CHOLECALCIFEROL

REACTIONS (2)
  - Cough [None]
  - Fatigue [None]

NARRATIVE: CASE EVENT DATE: 20161208
